FAERS Safety Report 24110040 (Version 2)
Quarter: 2024Q3

REPORT INFORMATION
  Report Type: Spontaneous
  Country: FR (occurrence: FR)
  Receive Date: 20240718
  Receipt Date: 20240725
  Transmission Date: 20241017
  Serious: Yes (Other)
  Sender: BAUSCH AND LOMB
  Company Number: FR-ACTAVIS-2010A-04444

PATIENT
  Age: 30 Year
  Sex: Female

DRUGS (3)
  1. ACYCLOVIR [Suspect]
     Active Substance: ACYCLOVIR
     Indication: Meningitis aseptic
     Dosage: 1350 MG EVERY EIGHT HOURS IN 500 ML SALINE SOLUTION I.E. A CONCENTRATION OF 2.7 MG/ML
     Route: 042
  2. NORFLOXACIN [Concomitant]
     Active Substance: NORFLOXACIN
     Indication: Urinary tract infection
  3. SIBUTRAMINE [Concomitant]
     Active Substance: SIBUTRAMINE
     Indication: Decreased appetite

REACTIONS (2)
  - Crystalluria [Recovered/Resolved]
  - Acute kidney injury [Recovered/Resolved]
